FAERS Safety Report 12417679 (Version 1)
Quarter: 2016Q2

REPORT INFORMATION
  Report Type: Report from Study
  Country: CO (occurrence: CO)
  Receive Date: 20160530
  Receipt Date: 20160530
  Transmission Date: 20160815
  Serious: Yes (Other)
  Sender: FDA-Public Use
  Company Number: PHHY2016CO037669

PATIENT
  Age: 52 Year
  Sex: Female
  Weight: 88 kg

DRUGS (2)
  1. TASIGNA [Suspect]
     Active Substance: NILOTINIB
     Indication: CHRONIC MYELOID LEUKAEMIA
     Dosage: 2 DF, Q12H
     Route: 048
  2. METOPROLOL. [Concomitant]
     Active Substance: METOPROLOL
     Indication: HYPERTENSION
     Dosage: 50 MG, Q12H
     Route: 048

REACTIONS (8)
  - Malaise [Unknown]
  - Hypoaesthesia [Unknown]
  - Weight decreased [Unknown]
  - Pain in extremity [Unknown]
  - Cough [Unknown]
  - Chikungunya virus infection [Unknown]
  - Pyrexia [Unknown]
  - Back pain [Unknown]

NARRATIVE: CASE EVENT DATE: 20160309
